FAERS Safety Report 5123629-4 (Version None)
Quarter: 2006Q4

REPORT INFORMATION
  Report Type: 
  Country: None (occurrence: None)
  Receive Date: 20061010
  Receipt Date: 20060925
  Transmission Date: 20070319
  Serious: Yes (Disabling)
  Sender: FDA-Public Use
  Company Number: DEWYE014025SEP06

PATIENT
  Sex: Male
  Weight: 91 kg

DRUGS (4)
  1. ENBREL [Suspect]
     Indication: RHEUMATOID ARTHRITIS
     Route: 058
     Dates: start: 20050301, end: 20060801
  2. PREDNISOLON [Suspect]
     Indication: RHEUMATOID ARTHRITIS
     Route: 048
     Dates: start: 20040701
  3. LANTAREL [Suspect]
     Indication: RHEUMATOID ARTHRITIS
     Dates: start: 20040701
  4. OXYCODONE HCL [Concomitant]
     Indication: INTERVERTEBRAL DISC DISORDER
     Dosage: 240 MG
     Route: 048
     Dates: start: 20030101

REACTIONS (3)
  - GINGIVAL ATROPHY [None]
  - PERIODONTITIS [None]
  - TOOTH LOSS [None]
